FAERS Safety Report 25096710 (Version 1)
Quarter: 2025Q1

REPORT INFORMATION
  Report Type: Report from Study
  Country: US (occurrence: US)
  Receive Date: 20250319
  Receipt Date: 20250319
  Transmission Date: 20250408
  Serious: Yes (Hospitalization)
  Sender: ALNYLAM PHARMACEUTICALS
  Company Number: US-ALNYLAM PHARMACEUTICALS, INC.-ALN-2025-001829

PATIENT

DRUGS (1)
  1. GIVLAARI [Suspect]
     Active Substance: GIVOSIRAN SODIUM
     Indication: Product used for unknown indication
     Dosage: 301.83 (UNITS WERE NOT REPORTED), MONTHLY (189 MILLIGRAM/MILLILITER)
     Route: 058
     Dates: start: 20250314, end: 20250314

REACTIONS (2)
  - Hospitalisation [Unknown]
  - Weight decreased [Unknown]
